FAERS Safety Report 5221832-6 (Version None)
Quarter: 2007Q1

REPORT INFORMATION
  Report Type: 
  Country: None (occurrence: None)
  Receive Date: 20070129
  Receipt Date: 20070123
  Transmission Date: 20070707
  Serious: Yes (Hospitalization, Other)
  Sender: FDA-Public Use
  Company Number: US-ELI_LILLY_AND_COMPANY-US200601002356

PATIENT
  Age: 36 Year
  Sex: Male
  Weight: 92.517 kg

DRUGS (3)
  1. SEROQUEL [Concomitant]
     Dosage: 25 MG, UNK
     Dates: start: 20010626, end: 20040317
  2. SEROQUEL [Concomitant]
     Dosage: 300 MG, UNK
  3. ZYPREXA [Suspect]
     Indication: CONVULSION
     Dosage: 10 MG, UNKNOWN
     Dates: start: 20010509, end: 20010626

REACTIONS (5)
  - BLOOD TRIGLYCERIDES INCREASED [None]
  - CARDIAC DISORDER [None]
  - DIABETES MELLITUS NON-INSULIN-DEPENDENT [None]
  - HYPERGLYCAEMIA [None]
  - WEIGHT INCREASED [None]
